FAERS Safety Report 7526364-8 (Version None)
Quarter: 2011Q2

REPORT INFORMATION
  Report Type: 
  Country: None (occurrence: None)
  Receive Date: 20110606
  Receipt Date: 20110207
  Transmission Date: 20111010
  Serious: Yes (Death, Hospitalization, Other)
  Sender: FDA-Public Use
  Company Number: US-BAYER-200939456NA

PATIENT
  Age: 75 Year
  Sex: Male
  Weight: 68.027 kg

DRUGS (29)
  1. PLAVIX [Concomitant]
     Dosage: 75 MG, UNK
     Route: 048
  2. ALLOPURINOL [Concomitant]
     Dosage: 300 MG, UNK
     Route: 048
  3. ZINACEF [Concomitant]
     Dosage: UNK
     Route: 042
     Dates: start: 20051101
  4. COUMADIN [Concomitant]
     Dosage: 10 MG, LONG TERM USE
     Route: 048
  5. LASIX [Concomitant]
     Dosage: 120 MG, UNK
     Route: 048
  6. CEFTIN [Concomitant]
     Dosage: 1000 MG, UNK
     Route: 048
  7. ASPIRIN [Concomitant]
     Dosage: 81 MG, UNK
     Route: 048
  8. INDOMETHACIN [Concomitant]
     Dosage: 75 MG, UNK
     Route: 048
  9. ISORDIL [Concomitant]
     Dosage: 10 MG, UNK
     Route: 048
  10. ALDACTONE [Concomitant]
     Dosage: 25 MG, UNK
     Route: 048
  11. DIGOXIN [Concomitant]
     Dosage: 0.25 MG, UNK
     Route: 048
  12. HYDROXYUREA [Concomitant]
     Dosage: 1000 MG, UNK
     Route: 048
  13. NOREPINEPHRINE BITARTRATE [Concomitant]
     Dosage: UNK
     Route: 042
     Dates: start: 20051101
  14. LISINOPRIL [Concomitant]
     Dosage: 10 MG, UNK
     Route: 048
  15. VASOPRESSIN [Concomitant]
     Dosage: UNK
     Route: 042
     Dates: start: 20051101
  16. MILRINONE [Concomitant]
     Dosage: UNK
     Route: 042
     Dates: start: 20051101
  17. TRASYLOL [Suspect]
     Indication: CORONARY ARTERY BYPASS
     Dosage: UNK
     Route: 042
     Dates: start: 20051101, end: 20051101
  18. TRASYLOL [Suspect]
     Indication: TRICUSPID VALVE REPAIR
  19. TRASYLOL [Suspect]
     Indication: CARDIAC ANEURYSM REPAIR
  20. INSULIN [Concomitant]
     Dosage: UNK
     Route: 042
     Dates: start: 20051101
  21. EPINEPHRINE [Concomitant]
     Dosage: UNK
     Route: 042
     Dates: start: 20051101
  22. VERSED [Concomitant]
     Dosage: UNK
     Route: 042
     Dates: start: 20051101
  23. TOPROL-XL [Concomitant]
     Dosage: ONE
     Route: 048
  24. HEPARIN [Concomitant]
     Dosage: UNK
     Route: 042
     Dates: start: 20051101
  25. TRASYLOL [Suspect]
     Indication: MITRAL VALVE REPLACEMENT
  26. TRASYLOL [Suspect]
     Indication: ATRIAL SEPTAL DEFECT REPAIR
  27. SINGULAIR [Concomitant]
     Dosage: 10 MG, UNK
     Route: 048
  28. COREG [Concomitant]
     Dosage: 12.5 MG, UNK
     Route: 048
  29. VECURONIUM BROMIDE [Concomitant]
     Dosage: UNK
     Route: 042
     Dates: start: 20051101

REACTIONS (15)
  - RENAL FAILURE [None]
  - STRESS [None]
  - RENAL FAILURE ACUTE [None]
  - ANHEDONIA [None]
  - FEAR [None]
  - PAIN [None]
  - RENAL INJURY [None]
  - RENAL TUBULAR NECROSIS [None]
  - EMOTIONAL DISTRESS [None]
  - UNEVALUABLE EVENT [None]
  - DEATH [None]
  - RENAL IMPAIRMENT [None]
  - INJURY [None]
  - CEREBROVASCULAR ACCIDENT [None]
  - ANXIETY [None]
